FAERS Safety Report 18153683 (Version 1)
Quarter: 2020Q3

REPORT INFORMATION
  Report Type: Report from Study
  Country: GT (occurrence: GT)
  Receive Date: 20200816
  Receipt Date: 20200816
  Transmission Date: 20201103
  Serious: Yes (Other)
  Sender: FDA-Public Use
  Company Number: NVSC2020GT224298

PATIENT
  Age: 61 Year
  Sex: Male

DRUGS (1)
  1. EXFORGE HCT [Suspect]
     Active Substance: AMLODIPINE BESYLATE\HYDROCHLOROTHIAZIDE\VALSARTAN
     Indication: PRODUCT USED FOR UNKNOWN INDICATION
     Dosage: UNK ((APPROXIMATELY 5 OR 6 YEARS AGO))
     Route: 065

REACTIONS (2)
  - Fracture [Unknown]
  - Hypertension [Unknown]

NARRATIVE: CASE EVENT DATE: 20200706
